FAERS Safety Report 11920177 (Version 2)
Quarter: 2016Q2

REPORT INFORMATION
  Report Type: Report from Study
  Country: US (occurrence: US)
  Receive Date: 20160115
  Receipt Date: 20160408
  Transmission Date: 20160815
  Serious: Yes (Death, Hospitalization, Other)
  Sender: FDA-Public Use
  Company Number: US-BAYER-2015-475737

PATIENT
  Age: 69 Year
  Sex: Female

DRUGS (14)
  1. LISINOPRIL. [Concomitant]
     Active Substance: LISINOPRIL
     Dosage: 10 MG, QD
     Route: 048
     Dates: start: 20160107
  2. TYLENOL WITH CODEINE [Concomitant]
     Active Substance: ACETAMINOPHEN\CODEINE PHOSPHATE
     Dosage: 500 MG, PRN
     Dates: start: 20160107
  3. STIVARGA [Suspect]
     Active Substance: REGORAFENIB
     Indication: ADENOCARCINOMA OF COLON
     Dosage: 160 MG, QD FOR 21 DAYS THEN 1 WEEK OFF EACH 28 DAY TREATMENT
     Route: 048
     Dates: end: 20151209
  4. HYDROCODONE [Concomitant]
     Active Substance: HYDROCODONE
     Indication: HEPATIC PAIN
     Dosage: 7.5 MG-2.5 MG
  5. LISINOPRIL. [Concomitant]
     Active Substance: LISINOPRIL
     Dosage: 10 MG, QD
     Route: 048
     Dates: start: 20160101
  6. OMEPRAZOLE. [Concomitant]
     Active Substance: OMEPRAZOLE
  7. STIVARGA [Suspect]
     Active Substance: REGORAFENIB
     Indication: ADENOCARCINOMA OF COLON
     Dosage: 120 MG, QD X 21 DAYS, THEN 7 DAY BREAK
     Route: 048
     Dates: start: 20151119
  8. ONDANSETRON HYDROCHLORIDE. [Concomitant]
     Active Substance: ONDANSETRON HYDROCHLORIDE
  9. METFORMIN HYDROCHLORIDE. [Concomitant]
     Active Substance: METFORMIN HYDROCHLORIDE
     Dosage: 850 MG, BID
     Route: 048
     Dates: start: 20160107
  10. LANTUS [Concomitant]
     Active Substance: INSULIN GLARGINE
     Dosage: 15 UNK, UNK
  11. LOMOTIL [DIPHENOXYLATE HYDROCHLORIDE] [Concomitant]
  12. MECLIZINE [Concomitant]
     Active Substance: MECLIZINE HYDROCHLORIDE
     Dosage: 25 MG, QD
     Route: 048
  13. GLIPIZIDE. [Concomitant]
     Active Substance: GLIPIZIDE
     Dosage: 5 MG, QD
     Route: 048
  14. GABAPENTIN. [Concomitant]
     Active Substance: GABAPENTIN
     Indication: NEUROPATHY PERIPHERAL
     Dosage: 300 MG, QD
     Route: 048
     Dates: start: 20160107

REACTIONS (18)
  - Pancreatic injury [None]
  - Oral pain [Unknown]
  - Nausea [Unknown]
  - Chromaturia [Not Recovered/Not Resolved]
  - Eating disorder [None]
  - Hepatic pain [None]
  - Jaundice [Fatal]
  - Pharyngeal erythema [None]
  - Weight decreased [None]
  - Oral pain [None]
  - Vomiting [Unknown]
  - Vomiting [None]
  - Liver injury [None]
  - Abdominal pain upper [None]
  - Abdominal pain [Not Recovered/Not Resolved]
  - Asthenia [None]
  - Oral pain [Unknown]
  - Oropharyngeal pain [None]

NARRATIVE: CASE EVENT DATE: 201511
